FAERS Safety Report 6757834-8 (Version None)
Quarter: 2010Q2

REPORT INFORMATION
  Report Type: 
  Country: None (occurrence: None)
  Receive Date: 20100607
  Receipt Date: 20100601
  Transmission Date: 20101027
  Serious: Yes (Death)
  Sender: FDA-Public Use
  Company Number: PHHY2010US22530

PATIENT
  Sex: Male

DRUGS (3)
  1. TEGRETOL [Suspect]
     Indication: CONVULSION
     Dosage: 200 MG, TID
  2. AMOXICILLIN [Concomitant]
     Indication: SINUSITIS
     Dosage: 500 MG, TID
     Dates: start: 20100302
  3. AMOXICILLIN [Concomitant]
     Indication: TOOTH DISORDER

REACTIONS (1)
  - DEATH [None]
